FAERS Safety Report 16521024 (Version 1)
Quarter: 2019Q3

REPORT INFORMATION
  Report Type: Other
  Country: DE (occurrence: DE)
  Receive Date: 20190703
  Receipt Date: 20190703
  Transmission Date: 20191004
  Serious: No
  Sender: FDA-Public Use
  Company Number: DE-LUPIN PHARMACEUTICALS INC.-2018-05327

PATIENT
  Age: 76 Year
  Sex: Male

DRUGS (1)
  1. SIMVASTATIN. [Suspect]
     Active Substance: SIMVASTATIN
     Indication: PRODUCT USED FOR UNKNOWN INDICATION
     Dosage: 40 MG, QD (DAILY INTAKE AROUND 18:00)
     Route: 065

REACTIONS (8)
  - Chromaturia [Unknown]
  - Burning sensation [Unknown]
  - Gait disturbance [Unknown]
  - Hypoaesthesia [Unknown]
  - Flushing [Unknown]
  - Muscle atrophy [Unknown]
  - Muscle spasms [Unknown]
  - Fatigue [Unknown]
